FAERS Safety Report 11783274 (Version 2)
Quarter: 2015Q4

REPORT INFORMATION
  Report Type: Report from Study
  Country: DE (occurrence: DE)
  Receive Date: 20151127
  Receipt Date: 20151222
  Transmission Date: 20160305
  Serious: Yes (Hospitalization)
  Sender: FDA-Public Use
  Company Number: DE-ABBVIE-15K-062-1488455-00

PATIENT
  Age: 48 Year
  Sex: Female

DRUGS (2)
  1. METHOTREXATE [Concomitant]
     Active Substance: METHOTREXATE
     Indication: PRODUCT USED FOR UNKNOWN INDICATION
  2. HUMIRA [Suspect]
     Active Substance: ADALIMUMAB
     Indication: RHEUMATOID ARTHRITIS
     Route: 058
     Dates: start: 20150903, end: 20151005

REACTIONS (4)
  - Rheumatoid arthritis [Unknown]
  - Postoperative fever [Recovered/Resolved]
  - Body temperature increased [Not Recovered/Not Resolved]
  - Osteoarthritis [Unknown]

NARRATIVE: CASE EVENT DATE: 20151008
